FAERS Safety Report 12663901 (Version 1)
Quarter: 2016Q3

REPORT INFORMATION
  Report Type: Spontaneous
  Country: FR (occurrence: FR)
  Receive Date: 20160818
  Receipt Date: 20160818
  Transmission Date: 20161109
  Serious: Yes (Other)
  Sender: FDA-Public Use
  Company Number: FR-JNJFOC-20160812329

PATIENT
  Age: 38 Year
  Sex: Male

DRUGS (1)
  1. REMICADE [Suspect]
     Active Substance: INFLIXIMAB
     Indication: CROHN^S DISEASE
     Route: 042
     Dates: start: 201208, end: 20141118

REACTIONS (9)
  - Pyoderma [Recovered/Resolved]
  - Furuncle [Recovered/Resolved]
  - Nasal crusting [Recovered/Resolved]
  - Rash pustular [Recovered/Resolved]
  - Staphylococcal skin infection [Unknown]
  - Angular cheilitis [Recovered/Resolved]
  - Alopecia areata [Recovered/Resolved]
  - Rhinitis [Recovered/Resolved]
  - Psoriasis [Recovered/Resolved]

NARRATIVE: CASE EVENT DATE: 201212
